FAERS Safety Report 6414515-8 (Version None)
Quarter: 2009Q4

REPORT INFORMATION
  Report Type: 
  Country: None (occurrence: None)
  Receive Date: 20091026
  Receipt Date: 20091023
  Transmission Date: 20100525
  Serious: Yes (Other)
  Sender: FDA-Public Use
  Company Number: US-ROXANE LABORATORIES, INC.-2009-RO-01091RO

PATIENT
  Age: 26 Year
  Sex: Male

DRUGS (6)
  1. LITHIUM CARBONATE [Suspect]
     Indication: BIPOLAR DISORDER
  2. LITHIUM CARBONATE [Suspect]
     Dosage: 900 MG
  3. SERTRALINE HCL [Suspect]
     Indication: BIPOLAR DISORDER
  4. LAMOTRIGINE [Suspect]
     Indication: BIPOLAR DISORDER
  5. BUPROPION HCL [Suspect]
     Indication: BIPOLAR DISORDER
  6. CLONAZEPAM [Suspect]
     Indication: BIPOLAR DISORDER

REACTIONS (2)
  - BRUGADA SYNDROME [None]
  - DRUG INEFFECTIVE [None]
